FAERS Safety Report 17470704 (Version 1)
Quarter: 2020Q1

REPORT INFORMATION
  Report Type: Spontaneous
  Country: US (occurrence: US)
  Receive Date: 20200228
  Receipt Date: 20200228
  Transmission Date: 20200409
  Serious: No
  Sender: FDA-Public Use
  Company Number: US-B.I. PHARMACEUTICALS,INC./RIDGEFIELD-2019-US-111900

PATIENT
  Age: 77 Year
  Sex: Female

DRUGS (3)
  1. ALVESCO [Concomitant]
     Active Substance: CICLESONIDE
     Indication: CHRONIC OBSTRUCTIVE PULMONARY DISEASE
     Route: 065
  2. SPIRIVA RESPIMAT [Suspect]
     Active Substance: TIOTROPIUM BROMIDE
     Indication: CHRONIC OBSTRUCTIVE PULMONARY DISEASE
     Dosage: 2 INHALATIONS, ONCE DAILY
     Route: 055
     Dates: start: 201910
  3. XOPENEX [Concomitant]
     Active Substance: LEVALBUTEROL HYDROCHLORIDE
     Indication: CHRONIC OBSTRUCTIVE PULMONARY DISEASE
     Route: 065

REACTIONS (3)
  - Palpitations [Recovered/Resolved]
  - Fall [Recovering/Resolving]
  - Hand fracture [Recovering/Resolving]

NARRATIVE: CASE EVENT DATE: 20191104
